FAERS Safety Report 20959695 (Version 3)
Quarter: 2024Q1

REPORT INFORMATION
  Report Type: Report from Study
  Country: US (occurrence: US)
  Receive Date: 20220614
  Receipt Date: 20240227
  Transmission Date: 20240410
  Serious: Yes (Other)
  Sender: FDA-Public Use
  Company Number: US-BIOGEN-2022BI01130641

PATIENT
  Age: 58 Year
  Sex: Female

DRUGS (18)
  1. VUMERITY [Suspect]
     Active Substance: DIROXIMEL FUMARATE
     Indication: Multiple sclerosis
     Route: 050
     Dates: start: 20210408
  2. VUMERITY [Suspect]
     Active Substance: DIROXIMEL FUMARATE
     Route: 050
  3. VUMERITY [Suspect]
     Active Substance: DIROXIMEL FUMARATE
     Route: 050
     Dates: start: 2024
  4. AVONEX [Suspect]
     Active Substance: INTERFERON BETA-1A
     Indication: Multiple sclerosis
     Route: 050
     Dates: start: 20101228, end: 20140427
  5. AVONEX [Suspect]
     Active Substance: INTERFERON BETA-1A
  6. AVONEX [Suspect]
     Active Substance: INTERFERON BETA-1A
  7. AVONEX [Suspect]
     Active Substance: INTERFERON BETA-1A
  8. AVONEX [Suspect]
     Active Substance: INTERFERON BETA-1A
  9. AVONEX [Suspect]
     Active Substance: INTERFERON BETA-1A
  10. AVONEX [Suspect]
     Active Substance: INTERFERON BETA-1A
  11. AVONEX [Suspect]
     Active Substance: INTERFERON BETA-1A
  12. AVONEX [Suspect]
     Active Substance: INTERFERON BETA-1A
  13. AVONEX [Suspect]
     Active Substance: INTERFERON BETA-1A
  14. AVONEX [Suspect]
     Active Substance: INTERFERON BETA-1A
  15. AVONEX [Suspect]
     Active Substance: INTERFERON BETA-1A
  16. AVONEX [Suspect]
     Active Substance: INTERFERON BETA-1A
  17. TECFIDERA [Suspect]
     Active Substance: DIMETHYL FUMARATE
     Indication: Multiple sclerosis
     Route: 050
     Dates: start: 20140625
  18. TECFIDERA [Suspect]
     Active Substance: DIMETHYL FUMARATE
     Route: 050
     Dates: start: 20140806, end: 20210401

REACTIONS (1)
  - Non-small cell lung cancer stage IV [Not Recovered/Not Resolved]

NARRATIVE: CASE EVENT DATE: 20220401
